FAERS Safety Report 21355787 (Version 1)
Quarter: 2022Q3

REPORT INFORMATION
  Report Type: Spontaneous
  Country: US (occurrence: None)
  Receive Date: 20220920
  Receipt Date: 20220920
  Transmission Date: 20221027
  Serious: Yes (Hospitalization)
  Sender: FDA-Public Use
  Company Number: None

PATIENT
  Sex: Female
  Weight: 56 kg

DRUGS (3)
  1. CARBOPLATIN [Suspect]
     Active Substance: CARBOPLATIN
     Dates: end: 20220620
  2. TAXOL [Suspect]
     Active Substance: PACLITAXEL
     Dates: end: 20220616
  3. ALIMTA [Suspect]
     Active Substance: PEMETREXED DISODIUM
     Dates: end: 20220620

REACTIONS (2)
  - Gastroenteritis [None]
  - Dehydration [None]

NARRATIVE: CASE EVENT DATE: 20220707
